FAERS Safety Report 10610399 (Version 2)
Quarter: 2014Q4

REPORT INFORMATION
  Report Type: Spontaneous
  Country: JP (occurrence: JP)
  Receive Date: 20141126
  Receipt Date: 20141219
  Transmission Date: 20150529
  Serious: Yes (Hospitalization)
  Sender: FDA-Public Use
  Company Number: JP-ACTELION-A-CH2014-108514

PATIENT
  Age: 83 Year
  Sex: Female
  Weight: 43.6 kg

DRUGS (9)
  1. OMEPRAZOLE. [Concomitant]
     Active Substance: OMEPRAZOLE
  2. ITOPRIDE [Concomitant]
     Active Substance: ITOPRIDE
  3. IMIPRAMINE [Concomitant]
     Active Substance: IMIPRAMINE
  4. ATORVASTATIN CALCIUM. [Suspect]
     Active Substance: ATORVASTATIN CALCIUM
     Indication: HYPERLIPIDAEMIA
     Dosage: 10 MG, UNK
     Route: 048
     Dates: end: 20141117
  5. AZELNIDIPINE [Concomitant]
     Active Substance: AZELNIDIPINE
  6. MIRABEGRON [Concomitant]
     Active Substance: MIRABEGRON
  7. TRACLEER [Suspect]
     Active Substance: BOSENTAN\BOSENTAN MONOHYDRATE
     Dosage: UNK
     Route: 048
  8. FEXOFENADINE [Concomitant]
     Active Substance: FEXOFENADINE\FEXOFENADINE HYDROCHLORIDE
  9. TRACLEER [Suspect]
     Active Substance: BOSENTAN\BOSENTAN MONOHYDRATE
     Indication: PRODUCT USED FOR UNKNOWN INDICATION
     Dosage: 93.75 MG, BID
     Route: 048
     Dates: start: 201303

REACTIONS (7)
  - Asthenia [Recovering/Resolving]
  - Fall [Recovering/Resolving]
  - Aspartate aminotransferase increased [Recovering/Resolving]
  - Rhabdomyolysis [Recovering/Resolving]
  - Alanine aminotransferase increased [Recovering/Resolving]
  - Gait disturbance [Recovering/Resolving]
  - Blood creatine phosphokinase increased [Recovering/Resolving]

NARRATIVE: CASE EVENT DATE: 20141116
